FAERS Safety Report 9251676 (Version 1)
Quarter: 2013Q1

REPORT INFORMATION
  Report Type: Spontaneous
  Country: US (occurrence: None)
  Receive Date: 20130305
  Receipt Date: 20130305
  Transmission Date: 20140127
  Serious: Yes (Other)
  Sender: FDA-Public Use
  Company Number: 163-21880-12092685

PATIENT
  Age: 53 Year
  Sex: Female

DRUGS (4)
  1. REVLIMID [Suspect]
     Indication: PLASMA CELL MYELOMA IN REMISSION
     Dosage: 08/03/2012 - 2012, CAPSULE, 10 MG, 28 IN 28 D, PO
     Route: 048
     Dates: start: 20120803, end: 2012
  2. ESTRACE (ESTRADIOL) [Concomitant]
  3. XANAX (ALPRAZOLAM) [Concomitant]
  4. SENNA S (COLOXYL WITH SENNA) [Concomitant]

REACTIONS (2)
  - Thrombosis [None]
  - Rash generalised [None]
